FAERS Safety Report 9552816 (Version 1)
Quarter: 2013Q2

REPORT INFORMATION
  Report Type: Spontaneous
  Country: US (occurrence: None)
  Receive Date: 20130606
  Receipt Date: 20130606
  Transmission Date: 20140414
  Serious: No
  Sender: FDA-Public Use
  Company Number: 2013PROUSA02772

PATIENT
  Age: 60 Year
  Sex: Male
  Weight: 64 kg

DRUGS (13)
  1. PROVENGE [Suspect]
     Indication: PROSTATE CANCER METASTATIC
     Dosage: 250 ML, SINGLE, INTRAVENOUS
     Route: 042
     Dates: start: 20130329, end: 20130329
  2. MS CONTIN [Concomitant]
  3. METHADONE (METHADONE HYDROCHLORIDE) [Concomitant]
  4. DILAUDID ( HYDROMORPHONE HYDROCHLORIDE) [Concomitant]
  5. LACTULOSE (LACTULOSE) [Concomitant]
  6. LASIX (FUROSEMIDE) [Concomitant]
  7. POTASSIUM CHLORIDE (POTASSIUM CHLORIDE) [Concomitant]
  8. PREDNISONE (PREDNISONE) [Concomitant]
  9. OMEPRAZOLE (OMEPRAZOLE) [Concomitant]
  10. ZOFRAN (ONDANSETRON HYDROCHLORIDE) [Concomitant]
  11. CALCIUM + VITAMIN D (CALCIUM CARBONATE, COLECALCIFEROL) [Concomitant]
  12. DENOSUMAB (DENOSUMAB) (RANMARK)) [Concomitant]
  13. IBUPROFEN (IBUPROFEN) [Concomitant]

REACTIONS (2)
  - Confusional state [None]
  - Body temperature increased [None]
